FAERS Safety Report 8490284-5 (Version None)
Quarter: 2012Q3

REPORT INFORMATION
  Report Type: 
  Country: None (occurrence: None)
  Receive Date: 20120705
  Receipt Date: 20120418
  Transmission Date: 20120928
  Serious: No
  Sender: FDA-Public Use
  Company Number: US-BAUSCH-2012BL002945

PATIENT
  Age: 59 Year
  Sex: Female

DRUGS (4)
  1. OPCON-A [Suspect]
     Indication: EYE PAIN
     Route: 047
  2. OPCON-A [Suspect]
     Indication: OCULAR HYPERAEMIA
     Route: 047
  3. BOSTON CLEANER [Concomitant]
  4. OPCON-A [Suspect]
     Indication: DRUG INEFFECTIVE FOR UNAPPROVED INDICATION
     Route: 047

REACTIONS (2)
  - DRUG INEFFECTIVE FOR UNAPPROVED INDICATION [None]
  - OCULAR HYPERAEMIA [None]
